FAERS Safety Report 14278255 (Version 3)
Quarter: 2020Q3

REPORT INFORMATION
  Report Type: Spontaneous
  Country: US (occurrence: US)
  Receive Date: 20171212
  Receipt Date: 20200717
  Transmission Date: 20201102
  Serious: No
  Sender: FDA-Public Use
  Company Number: US-PFIZER INC-2017528959

PATIENT
  Age: 55 Year
  Sex: Female

DRUGS (10)
  1. EFFEXOR XR [Suspect]
     Active Substance: VENLAFAXINE HYDROCHLORIDE
     Dosage: UNK
  2. CELEXA [Suspect]
     Active Substance: CITALOPRAM HYDROBROMIDE
     Dosage: UNK
  3. GABAPENTIN. [Suspect]
     Active Substance: GABAPENTIN
     Dosage: UNK
  4. LITHIUM. [Suspect]
     Active Substance: LITHIUM
     Dosage: UNK
  5. TOPAMAX [Suspect]
     Active Substance: TOPIRAMATE
     Dosage: UNK
  6. CYMBALTA [Suspect]
     Active Substance: DULOXETINE HYDROCHLORIDE
     Dosage: UNK
  7. RISPERDAL [Suspect]
     Active Substance: RISPERIDONE
     Dosage: UNK
  8. PAXIL [Suspect]
     Active Substance: PAROXETINE HYDROCHLORIDE
     Dosage: UNK
  9. LEXAPRO [Suspect]
     Active Substance: ESCITALOPRAM OXALATE
     Dosage: UNK
  10. VRAYLAR [Suspect]
     Active Substance: CARIPRAZINE
     Dosage: UNK

REACTIONS (1)
  - Drug hypersensitivity [Unknown]
